FAERS Safety Report 8947539 (Version 1)
Quarter: 2012Q4

REPORT INFORMATION
  Report Type: 
  Country: US (occurrence: US)
  Receive Date: 20121204
  Receipt Date: 20121204
  Transmission Date: 20130627
  Serious: Yes (Other)
  Sender: FDA-Public Use
  Company Number: US-US-EMD SERONO, INC.-7178657

PATIENT
  Age: 34 None
  Sex: Male
  Weight: 100 kg

DRUGS (3)
  1. REBIF [Suspect]
     Indication: MULTIPLE SCLEROSIS
     Route: 058
     Dates: start: 20100104
  2. REBIF [Suspect]
     Route: 058
     Dates: start: 20100104
  3. ALEVE [Concomitant]
     Indication: PREMEDICATION

REACTIONS (12)
  - Limb injury [Recovered/Resolved]
  - Joint injury [Recovered/Resolved]
  - Venous injury [Recovered/Resolved]
  - Arterial injury [Recovered/Resolved]
  - Muscle rupture [Recovered/Resolved]
  - Road traffic accident [Recovered/Resolved]
  - Anxiety [Not Recovered/Not Resolved]
  - Weight decreased [Recovered/Resolved]
  - Weight increased [Recovered/Resolved]
  - Dizziness [Unknown]
  - Injection site pain [Not Recovered/Not Resolved]
  - Injection site reaction [Not Recovered/Not Resolved]
